FAERS Safety Report 6125848-7 (Version None)
Quarter: 2009Q1

REPORT INFORMATION
  Report Type: 
  Country: None (occurrence: None)
  Receive Date: 20090320
  Receipt Date: 20090311
  Transmission Date: 20090719
  Serious: Yes (Hospitalization)
  Sender: FDA-Public Use
  Company Number: US-BIOGENIDEC-2009BI000477

PATIENT
  Sex: Male
  Weight: 61 kg

DRUGS (9)
  1. AVONEX [Suspect]
     Indication: MULTIPLE SCLEROSIS
     Route: 030
     Dates: end: 20081201
  2. AVONEX [Suspect]
     Route: 030
     Dates: start: 20081201
  3. HYDROCODONE BITARTRATE [Concomitant]
     Indication: INTERVERTEBRAL DISC PROTRUSION
  4. HYDROCODONE BITARTRATE [Concomitant]
     Indication: BACK PAIN
  5. VICODIN [Concomitant]
     Indication: INTERVERTEBRAL DISC PROTRUSION
  6. VICODIN [Concomitant]
     Indication: BACK PAIN
  7. LORAZEPAM [Concomitant]
     Indication: DRUG USE FOR UNKNOWN INDICATION
  8. MEDICATION [Concomitant]
     Indication: DRUG USE FOR UNKNOWN INDICATION
  9. FLOMAX [Concomitant]
     Indication: URINARY RETENTION

REACTIONS (5)
  - COMA [None]
  - CONSTIPATION [None]
  - CONTUSION [None]
  - LACERATION [None]
  - URINARY RETENTION [None]
